FAERS Safety Report 13132819 (Version 7)
Quarter: 2018Q2

REPORT INFORMATION
  Report Type: Spontaneous
  Country: ES (occurrence: ES)
  Receive Date: 20170120
  Receipt Date: 20180612
  Transmission Date: 20180711
  Serious: Yes (Other)
  Sender: FDA-Public Use
  Company Number: ES-009507513-1701ESP004354

PATIENT
  Age: 73 Year
  Sex: Male

DRUGS (1)
  1. ERTAPENEM SODIUM [Suspect]
     Active Substance: ERTAPENEM SODIUM
     Indication: ESCHERICHIA URINARY TRACT INFECTION
     Dosage: 1 G, Q24H
     Route: 042

REACTIONS (7)
  - Memory impairment [Unknown]
  - Disorientation [Unknown]
  - Hallucinations, mixed [Unknown]
  - Neurotoxicity [Recovered/Resolved]
  - Myoclonus [Unknown]
  - Delirium [Unknown]
  - Confusional state [Unknown]
